FAERS Safety Report 16764257 (Version 1)
Quarter: 2019Q3

REPORT INFORMATION
  Report Type: Spontaneous
  Country: FR (occurrence: FR)
  Receive Date: 20190902
  Receipt Date: 20190902
  Transmission Date: 20191005
  Serious: Yes (Other)
  Sender: FDA-Public Use
  Company Number: FR-TEVA-2019-FR-1099739

PATIENT
  Age: 48 Year
  Sex: Male
  Weight: 72.8 kg

DRUGS (6)
  1. TRUXIMA [Suspect]
     Active Substance: RITUXIMAB-ABBS
     Indication: LYMPHOMA
     Route: 041
     Dates: start: 20190723, end: 20190723
  2. POLARAMINE [Suspect]
     Active Substance: DEXCHLORPHENIRAMINE MALEATE
     Indication: PREMEDICATION
     Route: 041
     Dates: start: 20190723, end: 20190723
  3. OXALIPLATINE [Suspect]
     Active Substance: OXALIPLATIN
     Indication: LYMPHOMA
     Route: 041
     Dates: start: 20190723, end: 20190723
  4. ARACYTINE 1 G, LYOPHILISAT POUR USAGE PARENT?RAL (I.V.) [Suspect]
     Active Substance: CYTARABINE
     Indication: LYMPHOMA
     Route: 041
     Dates: start: 20190723, end: 20190723
  5. HYDROCORTISONE UPJOHN 100 MG, PR?PARATION INJECTABLE [Suspect]
     Active Substance: HYDROCORTISONE
     Indication: PREMEDICATION
     Route: 041
     Dates: start: 20190723, end: 20190723
  6. ONDANSETRON ACCORD 2 MG/ML, SOLUTION INJECTABLE [Suspect]
     Active Substance: ONDANSETRON HYDROCHLORIDE
     Indication: PREMEDICATION
     Route: 041
     Dates: start: 20190723, end: 20190723

REACTIONS (1)
  - Generalised erythema [Recovering/Resolving]

NARRATIVE: CASE EVENT DATE: 20190723
